FAERS Safety Report 4974046-9 (Version None)
Quarter: 2006Q1

REPORT INFORMATION
  Report Type: 
  Country: None (occurrence: None)
  Receive Date: 20060215
  Receipt Date: 20051123
  Transmission Date: 20060701
  Serious: No
  Sender: FDA-Public Use
  Company Number: US200511002953

PATIENT
  Sex: Male

DRUGS (3)
  1. CIALIS [Suspect]
     Indication: ERECTILE DYSFUNCTION
     Dosage: 20 MC ONCE A DAY
     Dates: start: 20051120
  2. LEVOXYL [Concomitant]
  3. LOVASTIN (LOVASTATIN) [Concomitant]

REACTIONS (1)
  - DRUG INEFFECTIVE [None]
